FAERS Safety Report 5469897-0 (Version None)
Quarter: 2007Q3

REPORT INFORMATION
  Report Type: 
  Country: None (occurrence: None)
  Receive Date: 20070927
  Receipt Date: 20070917
  Transmission Date: 20080115
  Serious: Yes (Hospitalization)
  Sender: FDA-Public Use
  Company Number: US-PURDUE-USA_2007_0028848

PATIENT
  Sex: Male

DRUGS (4)
  1. OXYCONTIN [Suspect]
     Indication: PAIN
     Dosage: UNK, SEE TEXT
  2. TRICYCLIC ANTIDEPRESSANTS [Concomitant]
  3. ANTIHYPERTENSIVES [Concomitant]
     Indication: BLOOD PRESSURE MANAGEMENT
  4. ALL OTHER THERAPEUTIC PRODUCTS [Concomitant]
     Indication: LEUKAEMIA

REACTIONS (5)
  - ACUTE PRERENAL FAILURE [None]
  - DEHYDRATION [None]
  - HYPERSOMNIA [None]
  - INTENTIONAL DRUG MISUSE [None]
  - STUPOR [None]
